FAERS Safety Report 10021463 (Version 1)
Quarter: 2014Q1

REPORT INFORMATION
  Report Type: Spontaneous
  Country: US (occurrence: None)
  Receive Date: 20140318
  Receipt Date: 20140318
  Transmission Date: 20141002
  Serious: Yes (Other)
  Sender: FDA-Public Use
  Company Number: None

PATIENT
  Age: 43 Year
  Sex: Male
  Weight: 83.92 kg

DRUGS (1)
  1. EFFEXOR XR [Suspect]
     Indication: ANXIETY
     Dosage: 1 PILL PER DAY   ONCE DAILY
     Route: 048

REACTIONS (6)
  - Nausea [None]
  - Dyspnoea [None]
  - Dizziness [None]
  - Headache [None]
  - Alanine aminotransferase increased [None]
  - Aspartate aminotransferase increased [None]
